FAERS Safety Report 18513825 (Version 3)
Quarter: 2020Q4

REPORT INFORMATION
  Report Type: Spontaneous
  Country: US (occurrence: US)
  Receive Date: 20201118
  Receipt Date: 20201218
  Transmission Date: 20210114
  Serious: No
  Sender: FDA-Public Use
  Company Number: US-UNITED THERAPEUTICS-UNT-2020-017405

PATIENT
  Age: 72 Year
  Sex: Female
  Weight: 68.71 kg

DRUGS (8)
  1. TYVASO [Suspect]
     Active Substance: TREPROSTINIL
     Indication: PULMONARY ARTERIAL HYPERTENSION
     Dosage: UNK
     Dates: start: 20201002
  2. TYVASO [Suspect]
     Active Substance: TREPROSTINIL
     Dosage: UNK
  3. TYVASO [Suspect]
     Active Substance: TREPROSTINIL
     Dosage: 30 ?G
     Dates: start: 2020
  4. TYVASO [Suspect]
     Active Substance: TREPROSTINIL
     Dosage: 36 ?G
     Dates: start: 2020
  5. TYVASO [Suspect]
     Active Substance: TREPROSTINIL
     Dosage: 18-54 ?G, QID
  6. TYVASO [Suspect]
     Active Substance: TREPROSTINIL
     Dosage: 24 ?G, QID
     Dates: start: 2020
  7. TYVASO [Suspect]
     Active Substance: TREPROSTINIL
     Dosage: 24 ?G
     Dates: start: 2020
  8. TYVASO [Suspect]
     Active Substance: TREPROSTINIL
     Dosage: 42 ?G

REACTIONS (2)
  - Cough [Unknown]
  - Hypertension [Unknown]

NARRATIVE: CASE EVENT DATE: 2020
